FAERS Safety Report 23934040 (Version 1)
Quarter: 2024Q2

REPORT INFORMATION
  Report Type: Spontaneous
  Country: IT (occurrence: IT)
  Receive Date: 20240603
  Receipt Date: 20240603
  Transmission Date: 20240716
  Serious: Yes (Life-Threatening, Other)
  Sender: FDA-Public Use
  Company Number: None

PATIENT
  Age: 59 Year
  Sex: Female
  Weight: 99 kg

DRUGS (3)
  1. PROPOFOL [Suspect]
     Active Substance: PROPOFOL
     Indication: Induction of anaesthesia
     Dosage: 400 MG (MILLIGRAM) AT AN UNSPECIFIED FREQUENCY (DOSAGE FORM: EMULSION FOR INJECTION)
     Route: 042
     Dates: start: 20240410, end: 20240410
  2. ROCURONIUM BROMIDE [Concomitant]
     Active Substance: ROCURONIUM BROMIDE
     Indication: Induction of anaesthesia
     Dosage: 70 MG (MILLIGRAM)
     Route: 042
     Dates: start: 20240410, end: 20240410
  3. FENTANYL [Concomitant]
     Active Substance: FENTANYL\FENTANYL CITRATE
     Indication: Induction of anaesthesia
     Dosage: 0.1 MG (MILLIGRAM)
     Route: 042
     Dates: start: 20240410, end: 20240410

REACTIONS (4)
  - Extra dose administered [Recovered/Resolved]
  - Hypoventilation [Recovered/Resolved]
  - Unwanted awareness during anaesthesia [Recovered/Resolved]
  - Procedural hypotension [Recovered/Resolved]

NARRATIVE: CASE EVENT DATE: 20240410
